FAERS Safety Report 25899504 (Version 1)
Quarter: 2025Q4

REPORT INFORMATION
  Report Type: Spontaneous
  Country: CN (occurrence: CN)
  Receive Date: 20251009
  Receipt Date: 20251009
  Transmission Date: 20260117
  Serious: Yes (Life-Threatening, Hospitalization, Other)
  Sender: UNICHEM
  Company Number: CN-UNICHEM LABORATORIES LIMITED-UNI-2025-CN-003464

PATIENT

DRUGS (3)
  1. METFORMIN [Suspect]
     Active Substance: METFORMIN HYDROCHLORIDE
     Indication: Product used for unknown indication
     Dosage: 450 GRAM, QD
     Route: 065
  2. ENALAPRIL [Suspect]
     Active Substance: ENALAPRIL
     Indication: Product used for unknown indication
     Dosage: 1280 MILLIGRAM, QD
     Route: 065
  3. RESERPINE [Suspect]
     Active Substance: RESERPINE
     Indication: Product used for unknown indication
     Dosage: 2500 MILLIGRAM, QD
     Route: 065

REACTIONS (20)
  - Respiratory failure [Recovering/Resolving]
  - Shock [Recovering/Resolving]
  - Distributive shock [Recovering/Resolving]
  - Intentional overdose [Unknown]
  - Toxicity to various agents [Unknown]
  - Metabolic acidosis [Recovering/Resolving]
  - Altered state of consciousness [Recovering/Resolving]
  - Acute kidney injury [Recovering/Resolving]
  - Hypothermia [Recovering/Resolving]
  - Disseminated intravascular coagulation [Recovering/Resolving]
  - Gastrointestinal haemorrhage [Recovering/Resolving]
  - Pulmonary oedema [Recovering/Resolving]
  - Ileus paralytic [Recovering/Resolving]
  - Capillary leak syndrome [Recovering/Resolving]
  - Abdominal compartment syndrome [Unknown]
  - Myocardial injury [Recovering/Resolving]
  - Hypoglycaemia [Recovering/Resolving]
  - Haemoptysis [Recovering/Resolving]
  - Hypoxic-ischaemic encephalopathy [Recovering/Resolving]
  - Hyperlactacidaemia [Recovering/Resolving]
